FAERS Safety Report 14526429 (Version 2)
Quarter: 2018Q1

REPORT INFORMATION
  Report Type: Report from Study
  Country: GB (occurrence: GB)
  Receive Date: 20180213
  Receipt Date: 20180213
  Transmission Date: 20180509
  Serious: Yes (Other)
  Sender: FDA-Public Use
  Company Number: PHHY2018GB021073

PATIENT
  Age: 89 Year
  Sex: Female

DRUGS (2)
  1. DEXAMETHASONE. [Suspect]
     Active Substance: DEXAMETHASONE
     Indication: PRODUCT USED FOR UNKNOWN INDICATION
     Dosage: UNK
     Route: 061
  2. DEXAMETHASONE. [Suspect]
     Active Substance: DEXAMETHASONE
     Dosage: UNK UNK, BID
     Route: 061

REACTIONS (4)
  - Choroidal detachment [Recovered/Resolved]
  - Visual acuity reduced [Unknown]
  - Choroidal effusion [Recovered/Resolved]
  - Ocular discomfort [Recovering/Resolving]
